FAERS Safety Report 15255012 (Version 1)
Quarter: 2018Q3

REPORT INFORMATION
  Report Type: Spontaneous
  Country: US (occurrence: US)
  Receive Date: 20180808
  Receipt Date: 20180808
  Transmission Date: 20181010
  Serious: Yes (Hospitalization)
  Sender: FDA-Public Use
  Company Number: US-ORPHAN EUROPE-2053439

PATIENT
  Age: 15 Day
  Sex: Female

DRUGS (1)
  1. CARBAGLU [Suspect]
     Active Substance: CARGLUMIC ACID
     Indication: HYPERGLYCINAEMIA
     Dates: start: 20180509

REACTIONS (3)
  - Off label use [Recovered/Resolved]
  - Vomiting [Unknown]
  - Ammonia increased [Unknown]

NARRATIVE: CASE EVENT DATE: 20180509
